FAERS Safety Report 5767466-6 (Version None)
Quarter: 2008Q2

REPORT INFORMATION
  Report Type: 
  Country: None (occurrence: None)
  Receive Date: 20080612
  Receipt Date: 20080602
  Transmission Date: 20081010
  Serious: Yes (Life-Threatening, Hospitalization)
  Sender: FDA-Public Use
  Company Number: JP-JNJFOC-20071201234

PATIENT
  Sex: Female

DRUGS (13)
  1. REMICADE [Suspect]
     Dosage: FORTH DOSE
     Route: 042
  2. REMICADE [Suspect]
     Route: 042
  3. REMICADE [Suspect]
     Route: 042
  4. REMICADE [Suspect]
     Indication: RHEUMATOID ARTHRITIS
     Dosage: 2 DOSES ON UNKNOWN DATES
     Route: 042
  5. METHOTREXATE [Suspect]
     Route: 048
  6. METHOTREXATE [Suspect]
     Indication: RHEUMATOID ARTHRITIS
     Route: 048
  7. BREDININ [Suspect]
     Indication: RHEUMATOID ARTHRITIS
     Route: 048
  8. INFREE S [Concomitant]
     Indication: RHEUMATOID ARTHRITIS
     Route: 048
  9. FAMOTIDINE [Concomitant]
     Indication: PROPHYLAXIS AGAINST GASTROINTESTINAL ULCER
     Route: 048
  10. GLAKAY [Concomitant]
     Indication: OSTEOPOROSIS PROPHYLAXIS
     Route: 048
  11. PREDNISOLONE [Concomitant]
     Indication: RHEUMATOID ARTHRITIS
     Route: 048
  12. FOLIAMIN [Concomitant]
     Indication: PROPHYLAXIS
     Route: 048
  13. ISCOTIN [Concomitant]
     Indication: ANTIBIOTIC PROPHYLAXIS
     Route: 048

REACTIONS (1)
  - DIFFUSE LARGE B-CELL LYMPHOMA [None]
